FAERS Safety Report 8675994 (Version 6)
Quarter: 2014Q2

REPORT INFORMATION
  Report Type: Spontaneous
  Country: JP (occurrence: JP)
  Receive Date: 20120720
  Receipt Date: 20140612
  Transmission Date: 20141212
  Serious: Yes (Disabling, Other)
  Sender: FDA-Public Use
  Company Number: PHHY2012JP061860

PATIENT
  Sex: Female

DRUGS (29)
  1. CLOZARIL [Suspect]
     Indication: SCHIZOPHRENIA, PARANOID TYPE
     Dosage: 12.5 MG, DAILY
     Route: 048
     Dates: start: 20120118, end: 20120118
  2. CLOZARIL [Suspect]
     Dosage: 25 MG, DAILY
     Route: 048
     Dates: start: 20120119, end: 20120121
  3. CLOZARIL [Suspect]
     Dosage: 50 MG, DAILY
     Route: 048
     Dates: start: 20120122, end: 20120124
  4. CLOZARIL [Suspect]
     Dosage: 75 MG, DAILY
     Route: 048
     Dates: start: 20120125, end: 20120126
  5. CLOZARIL [Suspect]
     Dosage: 100 MG, DAILY
     Route: 048
     Dates: start: 20120127, end: 20120128
  6. CLOZARIL [Suspect]
     Dosage: 125 MG, DAILY
     Route: 048
     Dates: start: 20120129, end: 20120131
  7. CLOZARIL [Suspect]
     Dosage: 150 MG, DAILY
     Route: 048
     Dates: start: 20120201, end: 20120203
  8. CLOZARIL [Suspect]
     Dosage: 175 MG, DAILY
     Route: 048
     Dates: start: 20120204, end: 20120206
  9. CLOZARIL [Suspect]
     Dosage: 200 MG, DAILY
     Route: 048
     Dates: start: 20120207, end: 20120210
  10. CLOZARIL [Suspect]
     Dosage: 225 MG, DAILY
     Route: 048
     Dates: start: 20120211, end: 20120214
  11. CLOZARIL [Suspect]
     Dosage: 250 MG, DAILY
     Route: 048
     Dates: start: 20120215, end: 20120222
  12. CLOZARIL [Suspect]
     Dosage: 300 MG, DAILY
     Route: 048
     Dates: start: 20120223, end: 20120229
  13. CLOZARIL [Suspect]
     Dosage: 350 MG, DAILY
     Route: 048
     Dates: start: 20120301, end: 20120307
  14. CLOZARIL [Suspect]
     Dosage: 400 MG, DAILY
     Route: 048
     Dates: start: 20120308, end: 20120314
  15. CLOZARIL [Suspect]
     Dosage: 450 MG, DAILY
     Route: 048
     Dates: start: 20120315, end: 20120321
  16. CLOZARIL [Suspect]
     Dosage: 500 MG, DAILY
     Route: 048
     Dates: start: 20120322, end: 20120328
  17. CLOZARIL [Suspect]
     Dosage: 550 MG, DAILY
     Route: 048
     Dates: start: 20120329, end: 20120411
  18. CLOZARIL [Suspect]
     Dosage: 500 MG, DAILY
     Route: 048
     Dates: start: 20120412
  19. FLUNITRAZEPAM [Concomitant]
     Indication: SCHIZOPHRENIA
     Dosage: 1 MG, UNK
     Route: 048
     Dates: start: 20120118
  20. VALPROATE SODIUM [Concomitant]
     Indication: CONVULSION
  21. LAMOTRIGINE [Concomitant]
     Indication: CONVULSION
     Dosage: 100 MG, UNK
  22. CLONAZEPAM [Concomitant]
     Indication: CONVULSION
     Dosage: 1 MG, UNK
  23. DEPAKENE-R [Concomitant]
     Indication: SCHIZOPHRENIA, PARANOID TYPE
     Dosage: 900 MG, UNK
     Route: 048
     Dates: start: 20120719
  24. MAGMITT [Concomitant]
     Indication: TYPE 2 DIABETES MELLITUS
     Dosage: 900 MG, UNK
     Route: 048
     Dates: start: 20120719
  25. RAVOTRIL [Concomitant]
     Indication: SCHIZOPHRENIA, PARANOID TYPE
     Dosage: 1 MG, UNK
     Route: 048
     Dates: start: 20120719
  26. LAMICTAL [Concomitant]
     Indication: TYPE 2 DIABETES MELLITUS
     Dosage: 12.5 MG, UNK
     Route: 048
     Dates: start: 20120808
  27. LAMICTAL [Concomitant]
     Dosage: 25 MG, UNK
  28. LAMICTAL [Concomitant]
     Dosage: 50 MG, UNK
     Route: 048
  29. LAMICTAL [Concomitant]
     Dosage: 100 MG, UNK
     Route: 048

REACTIONS (6)
  - Loss of consciousness [Recovered/Resolved]
  - Epilepsy [Recovered/Resolved]
  - Myoclonus [Recovered/Resolved]
  - Tachycardia [Not Recovered/Not Resolved]
  - Hyperphagia [Not Recovered/Not Resolved]
  - Hyperglycaemia [Not Recovered/Not Resolved]
